FAERS Safety Report 16759226 (Version 1)
Quarter: 2019Q3

REPORT INFORMATION
  Report Type: Spontaneous
  Country: US (occurrence: US)
  Receive Date: 20190830
  Receipt Date: 20190830
  Transmission Date: 20191005
  Serious: No
  Sender: FDA-Public Use
  Company Number: US-BEH-2019105840

PATIENT
  Age: 53 Year
  Sex: Male

DRUGS (22)
  1. CALCIUM [Concomitant]
     Active Substance: CALCIUM
  2. LINZESS [Concomitant]
     Active Substance: LINACLOTIDE
  3. NORTHERA [Concomitant]
     Active Substance: DROXIDOPA
  4. PERCOCET [Concomitant]
     Active Substance: ACETAMINOPHEN\OXYCODONE HYDROCHLORIDE
  5. POTASSIUM [Concomitant]
     Active Substance: POTASSIUM
  6. ABILIFY [Concomitant]
     Active Substance: ARIPIPRAZOLE
  7. NIASPAN [Concomitant]
     Active Substance: NIACIN
  8. SONATA [ZALEPLON] [Concomitant]
  9. LYRICA [Concomitant]
     Active Substance: PREGABALIN
  10. PRADAXA [Concomitant]
     Active Substance: DABIGATRAN ETEXILATE MESYLATE
  11. VITAMIN C [Concomitant]
     Active Substance: ASCORBIC ACID
  12. HIZENTRA [Suspect]
     Active Substance: HUMAN IMMUNOGLOBULIN G
     Indication: IMMUNODEFICIENCY COMMON VARIABLE
     Dosage: 16 GRAM (80 ML), QW
     Route: 058
     Dates: start: 20170131
  13. ASPIRIN [ACETYLSALICYLIC ACID] [Concomitant]
     Active Substance: ASPIRIN
  14. DIGOXIN. [Concomitant]
     Active Substance: DIGOXIN
  15. MAG OXIDE [Concomitant]
     Active Substance: MAGNESIUM OXIDE
  16. METOPROLOL. [Concomitant]
     Active Substance: METOPROLOL
  17. XANAX [Concomitant]
     Active Substance: ALPRAZOLAM
  18. IRON [Concomitant]
     Active Substance: IRON
  19. LOVAZA [Concomitant]
     Active Substance: OMEGA-3-ACID ETHYL ESTERS
  20. SYNTHROID [Concomitant]
     Active Substance: LEVOTHYROXINE SODIUM
  21. CYCLOBENZAPRIN [Concomitant]
     Active Substance: CYCLOBENZAPRINE
  22. TORSEMIDE. [Concomitant]
     Active Substance: TORSEMIDE

REACTIONS (1)
  - Administration site pain [Not Recovered/Not Resolved]

NARRATIVE: CASE EVENT DATE: 20190806
